FAERS Safety Report 18097182 (Version 2)
Quarter: 2020Q3

REPORT INFORMATION
  Report Type: Spontaneous
  Country: US (occurrence: US)
  Receive Date: 20200731
  Receipt Date: 20200916
  Transmission Date: 20201103
  Serious: No
  Sender: FDA-Public Use
  Company Number: US-PFIZER INC-2020286780

PATIENT
  Age: 15 Year
  Sex: Male
  Weight: 61.23 kg

DRUGS (2)
  1. GENOTROPIN [Suspect]
     Active Substance: SOMATROPIN
     Indication: GROWTH DISORDER
     Dosage: 3 MG (3MG BY INJECTION ONCE DAILY 6 DAYS A WEEK)
  2. GENOTROPIN [Suspect]
     Active Substance: SOMATROPIN
     Dosage: 1.5 MG, DAILY (1.5MG BY INJECTION ONCE DAILY FOR 7 DAYS A WEEK)

REACTIONS (1)
  - Blood test abnormal [Recovered/Resolved]
